FAERS Safety Report 5732778-9 (Version None)
Quarter: 2008Q2

REPORT INFORMATION
  Report Type: 
  Country: None (occurrence: None)
  Receive Date: 20080507
  Receipt Date: 20080507
  Transmission Date: 20081010
  Serious: Yes (Hospitalization)
  Sender: FDA-Public Use
  Company Number: None

PATIENT
  Age: 78 Year
  Sex: Male

DRUGS (1)
  1. IRINOTECAN HCL [Suspect]
     Dosage: 250 MG   ONCE    IV
     Route: 042
     Dates: start: 20080205, end: 20080205

REACTIONS (2)
  - DEHYDRATION [None]
  - PANCYTOPENIA [None]
